FAERS Safety Report 14858587 (Version 6)
Quarter: 2018Q3

REPORT INFORMATION
  Report Type: Report from Study
  Country: CN (occurrence: CN)
  Receive Date: 20180508
  Receipt Date: 20180827
  Transmission Date: 20181010
  Serious: Yes (Hospitalization)
  Sender: FDA-Public Use
  Company Number: CN-ROCHE-2115637

PATIENT
  Age: 28 Year
  Sex: Female
  Weight: 62.5 kg

DRUGS (18)
  1. TRASTUZUMAB. [Suspect]
     Active Substance: TRASTUZUMAB
     Indication: HER-2 POSITIVE GASTRIC CANCER
     Dosage: LODING DOSE?(8 MG/KG IV INITIAL DOSE ON DAY 1, FOLLOWED BY 6 MG/KG IV ONCE IN 3 WEEKS UNTIL DISEASE
     Route: 042
     Dates: start: 20150821
  2. HAEMOCOAGULASE AGKISTRODON [Concomitant]
     Indication: ANAEMIA
     Dosage: DOSE: 1 UNIT
     Route: 050
     Dates: start: 20180508, end: 20180508
  3. CARBAZOCHROME SODIUM SULFONATE [Concomitant]
     Active Substance: CARBAZOCHROME SODIUM SULFONATE
     Indication: ANAEMIA
     Route: 050
     Dates: start: 20180429, end: 20180501
  4. VITAMIN B6 [Concomitant]
     Active Substance: PYRIDOXINE HYDROCHLORIDE
     Indication: ANAEMIA
     Route: 050
     Dates: start: 20180430, end: 20180430
  5. GLUCOSE [Concomitant]
     Active Substance: DEXTROSE
     Indication: HYPOGLYCAEMIA
     Route: 050
     Dates: start: 20180516, end: 20180517
  6. SOMATOSTATIN [Concomitant]
     Active Substance: SOMATOSTATIN
     Indication: ANAEMIA
     Route: 042
     Dates: start: 20180429, end: 20180430
  7. ESOMEPRAZOLE SODIUM. [Concomitant]
     Active Substance: ESOMEPRAZOLE SODIUM
     Route: 042
     Dates: start: 20180430, end: 20180501
  8. BLOOD TRANSFUSION [Concomitant]
     Active Substance: HUMAN RED BLOOD CELL
     Indication: ANAEMIA
     Route: 050
     Dates: start: 20180508, end: 20180508
  9. ESOMEPRAZOLE SODIUM. [Concomitant]
     Active Substance: ESOMEPRAZOLE SODIUM
     Route: 042
     Dates: start: 20180502, end: 20180503
  10. RED CELLS PACK [Concomitant]
     Indication: ANAEMIA
     Dosage: DOSE: 3 UNIT
     Route: 050
     Dates: start: 20180503, end: 20180503
  11. SOMATOSTATIN [Concomitant]
     Active Substance: SOMATOSTATIN
     Route: 050
     Dates: start: 20180508, end: 20180508
  12. AMINOMETHYLBENZOIC ACID [Concomitant]
     Active Substance: AMINOMETHYLBENZOIC ACID
     Indication: ANAEMIA
     Route: 050
     Dates: start: 20180508, end: 20180508
  13. METOCLOPRAMIDE DIHYDROCHLORIDE [Concomitant]
     Indication: VOMITING
     Route: 030
     Dates: start: 20180429, end: 20180430
  14. TRASTUZUMAB. [Suspect]
     Active Substance: TRASTUZUMAB
     Dosage: MAINTENANCE DOSE
     Route: 042
  15. CAPECITABINE. [Suspect]
     Active Substance: CAPECITABINE
     Indication: HER-2 POSITIVE GASTRIC CANCER
     Dosage: (1000 MG/M X 2 ORALLY TWICE DAILY, EVENING OF DAY 1 TO MORNING OF DAY 15 (28 DOSES) ONCE IN THREE WE
     Route: 048
     Dates: start: 20150821
  16. ESOMEPRAZOLE SODIUM. [Concomitant]
     Active Substance: ESOMEPRAZOLE SODIUM
     Dosage: 2 STATIC PUSH
     Route: 065
  17. CISPLATIN. [Suspect]
     Active Substance: CISPLATIN
     Indication: HER-2 POSITIVE GASTRIC CANCER
     Dosage: (80 MG/M X 2 IV ONCE IN 3 WEEKS FOR 6 CYCLES: AS PER PROTOCOL).?DATE OF MOST RECENT DOSE OF CISPLATI
     Route: 042
     Dates: start: 20150821
  18. PLACEBO [Suspect]
     Active Substance: UNSPECIFIED INGREDIENT
     Indication: HER-2 POSITIVE GASTRIC CANCER
     Dosage: DATE OF MOST RECENT DOSE PRIOR TO AE ONSET 18 APR 2018
     Route: 042
     Dates: start: 20150821

REACTIONS (1)
  - Upper gastrointestinal haemorrhage [Recovered/Resolved]

NARRATIVE: CASE EVENT DATE: 20180426
